FAERS Safety Report 16840276 (Version 1)
Quarter: 2019Q3

REPORT INFORMATION
  Report Type: Report from Study
  Country: MX (occurrence: MX)
  Receive Date: 20190923
  Receipt Date: 20190923
  Transmission Date: 20191005
  Serious: Yes (Other)
  Sender: FDA-Public Use
  Company Number: PHHY2019MX218874

PATIENT
  Sex: Female
  Weight: 65 kg

DRUGS (1)
  1. GALVUS MET [Suspect]
     Active Substance: METFORMIN HYDROCHLORIDE\VILDAGLIPTIN
     Indication: BLOOD GLUCOSE ABNORMAL
     Dosage: 1 DF, BID (METFORMIN 500MG,VILDAGLIPTIN 50MG)
     Route: 048

REACTIONS (4)
  - Gait disturbance [Unknown]
  - Infarction [Unknown]
  - Balance disorder [Unknown]
  - Blood pressure abnormal [Unknown]
